FAERS Safety Report 4502229-0 (Version None)
Quarter: 2004Q4

REPORT INFORMATION
  Report Type: 
  Country: None (occurrence: None)
  Receive Date: 20041116
  Receipt Date: 20041108
  Transmission Date: 20050328
  Serious: Yes (Hospitalization)
  Sender: FDA-Public Use
  Company Number: US-JNJFOC-20041102603

PATIENT
  Sex: Female
  Weight: 72.58 kg

DRUGS (2)
  1. ORTHO EVRA [Suspect]
     Route: 062
     Dates: start: 20041025
  2. ORTHO EVRA [Suspect]
     Indication: CONTRACEPTION
     Route: 062
     Dates: start: 20041025

REACTIONS (3)
  - DIZZINESS [None]
  - METRORRHAGIA [None]
  - URINARY TRACT INFECTION [None]
